FAERS Safety Report 9917957 (Version 2)
Quarter: 2014Q1

REPORT INFORMATION
  Report Type: Spontaneous
  Country: US (occurrence: US)
  Receive Date: 20140222
  Receipt Date: 20140222
  Transmission Date: 20141002
  Serious: Yes (Death)
  Sender: FDA-Public Use
  Company Number: US-GE HEALTHCARE MEDICAL DIAGNOSTICS-OSCN-PR-0903S-0136

PATIENT
  Sex: Male

DRUGS (24)
  1. OMNISCAN [Suspect]
     Indication: RENAL VESSEL DISORDER
     Route: 042
     Dates: start: 20040927, end: 20040927
  2. OMNISCAN [Suspect]
     Route: 042
     Dates: start: 20040226, end: 20040226
  3. GADOLINIUM (UNSPECIFIED) [Suspect]
     Indication: OEDEMA
     Route: 042
     Dates: start: 19990622, end: 19990622
  4. GADOLINIUM (UNSPECIFIED) [Suspect]
     Indication: PAIN IN EXTREMITY
     Route: 042
     Dates: start: 20001109, end: 20001109
  5. GADOLINIUM (UNSPECIFIED) [Suspect]
     Indication: PERIPHERAL VASCULAR DISORDER
     Route: 042
     Dates: start: 20040226, end: 20040226
  6. GADOLINIUM (UNSPECIFIED) [Suspect]
     Route: 042
     Dates: start: 20040917, end: 20040917
  7. COUMADIN [Concomitant]
     Indication: CARDIAC DISORDER
  8. TYLENOL [Concomitant]
     Indication: PAIN
  9. HYDROCODONE [Concomitant]
     Indication: PAIN
  10. NEURONTIN [Concomitant]
     Indication: PAIN
  11. MORPHINE [Concomitant]
     Indication: PAIN
  12. LYRICA [Concomitant]
     Indication: PAIN
  13. OXYGEN [Concomitant]
     Indication: DYSPNOEA
  14. EPOGEN [Concomitant]
  15. HYDROCODONE W/ACETAMINOPHEN [Concomitant]
  16. PREVACID [Concomitant]
  17. SULFASALAZIN [Concomitant]
  18. FLUCONAZOLE [Concomitant]
  19. ADVAIR [Concomitant]
  20. DIPHENHYDRAMINE [Concomitant]
  21. PROMETHAZINE [Concomitant]
  22. AMBIEN [Concomitant]
  23. IRON [Concomitant]
  24. VITAMINS NOS [Concomitant]

REACTIONS (1)
  - Nephrogenic systemic fibrosis [Fatal]
